FAERS Safety Report 8535603-6 (Version None)
Quarter: 2012Q3

REPORT INFORMATION
  Report Type: 
  Country: None (occurrence: None)
  Receive Date: 20120725
  Receipt Date: 20120713
  Transmission Date: 20120928
  Serious: Yes (Other)
  Sender: FDA-Public Use
  Company Number: US-SANOFI-AVENTIS-2012SA050338

PATIENT
  Age: 72 Year
  Sex: Female

DRUGS (4)
  1. SOLOSTAR [Suspect]
     Dates: start: 20120101
  2. LANTUS [Suspect]
     Dosage: DOSE:6 UNIT(S)
     Route: 058
     Dates: start: 20120101
  3. SOLOSTAR [Suspect]
     Dates: start: 20070101, end: 20090101
  4. LANTUS [Suspect]
     Route: 058
     Dates: start: 20070101, end: 20090101

REACTIONS (2)
  - WEIGHT DECREASED [None]
  - COLON CANCER [None]
